FAERS Safety Report 20830506 (Version 6)
Quarter: 2022Q4

REPORT INFORMATION
  Report Type: Spontaneous
  Country: DE (occurrence: DE)
  Receive Date: 20220514
  Receipt Date: 20221222
  Transmission Date: 20230112
  Serious: Yes (Other)
  Sender: FDA-Public Use
  Company Number: DE-NOVARTISPH-NVSC2022DE106712

PATIENT
  Age: 56 Year
  Sex: Male

DRUGS (17)
  1. CARBOPLATIN [Suspect]
     Active Substance: CARBOPLATIN
     Indication: Non-small cell lung cancer
     Dosage: 732 MG, QMO
     Route: 042
     Dates: start: 20211028, end: 20211117
  2. CARBOPLATIN [Suspect]
     Active Substance: CARBOPLATIN
     Dosage: 667 MG, QMO
     Route: 042
     Dates: start: 20211117, end: 20211117
  3. IPILIMUMAB [Suspect]
     Active Substance: IPILIMUMAB
     Indication: Non-small cell lung cancer
     Dosage: 82 MG, QMO
     Route: 042
     Dates: start: 20211028
  4. IPILIMUMAB [Suspect]
     Active Substance: IPILIMUMAB
     Dosage: 74 MG, QMO
     Route: 042
     Dates: start: 20211028
  5. NIVOLUMAB [Suspect]
     Active Substance: NIVOLUMAB
     Indication: Non-small cell lung cancer
     Dosage: 360 MG, QMO
     Route: 042
     Dates: start: 20211028
  6. KEPPRA [Concomitant]
     Active Substance: LEVETIRACETAM
     Indication: Product used for unknown indication
     Dosage: UNK
     Route: 065
     Dates: start: 20210809
  7. PANTOZOL [Concomitant]
     Active Substance: PANTOPRAZOLE SODIUM
     Indication: Product used for unknown indication
     Dosage: UNK
     Route: 065
     Dates: start: 20210809
  8. CHOLECALCIFEROL [Concomitant]
     Active Substance: CHOLECALCIFEROL
     Indication: Product used for unknown indication
     Dosage: UNK
     Route: 065
     Dates: start: 20210830
  9. LEVOTHYROXINE SODIUM [Concomitant]
     Active Substance: LEVOTHYROXINE SODIUM
     Indication: Product used for unknown indication
     Dosage: UNK
     Route: 065
     Dates: start: 20220324
  10. PEMETREXED [Concomitant]
     Active Substance: PEMETREXED
     Indication: Product used for unknown indication
     Dosage: UNK
     Route: 042
     Dates: start: 20211117, end: 20211117
  11. AKYNZEO [Concomitant]
     Indication: Product used for unknown indication
     Dosage: UNK
     Route: 065
     Dates: start: 20210902
  12. GRANISETRONUM [Concomitant]
     Indication: Product used for unknown indication
     Dosage: UNK
     Route: 065
     Dates: start: 20211208
  13. ACEOTO [Concomitant]
     Indication: Product used for unknown indication
     Dosage: UNK
     Route: 065
     Dates: start: 20211004, end: 20211025
  14. PREDNICARB [Concomitant]
     Indication: Product used for unknown indication
     Dosage: UNK (CREME)
     Route: 065
     Dates: start: 20211104, end: 20211127
  15. HC HYDROCORTISON [Concomitant]
     Indication: Product used for unknown indication
     Dosage: UNK
     Route: 065
     Dates: start: 20211123
  16. FOLIC ACID [Concomitant]
     Active Substance: FOLIC ACID
     Indication: Product used for unknown indication
     Dosage: UNK
     Route: 065
     Dates: start: 20210824, end: 20211124
  17. PREDNITOP [Concomitant]
     Indication: Product used for unknown indication
     Dosage: UNK
     Route: 065
     Dates: start: 20221108

REACTIONS (11)
  - Hypothyroidism [Recovering/Resolving]
  - Haemoglobin decreased [Recovered/Resolved]
  - Immune-mediated hypothyroidism [Recovering/Resolving]
  - Constipation [Recovered/Resolved]
  - Haemoglobin decreased [Recovered/Resolved]
  - Rash [Recovered/Resolved]
  - Ear pain [Recovered/Resolved]
  - Speech disorder [Recovered/Resolved]
  - Off label use [Unknown]
  - Expired product administered [Unknown]
  - Dizziness [Recovered/Resolved]

NARRATIVE: CASE EVENT DATE: 20211104
